FAERS Safety Report 18460963 (Version 1)
Quarter: 2020Q4

REPORT INFORMATION
  Report Type: Spontaneous
  Country: CN (occurrence: CN)
  Receive Date: 20201104
  Receipt Date: 20201104
  Transmission Date: 20210114
  Serious: Yes (Hospitalization, Other)
  Sender: FDA-Public Use
  Company Number: CN-CHEPLA-C20203210

PATIENT
  Age: 58 Year
  Sex: Female
  Weight: 80 kg

DRUGS (5)
  1. ATORVASTATIN CALCIUM. [Suspect]
     Active Substance: ATORVASTATIN CALCIUM
     Route: 048
  2. ORLISTAT. [Suspect]
     Active Substance: ORLISTAT
     Indication: OBESITY
     Dosage: 0.12 G ORALLY ONCE DAILY
     Route: 048
     Dates: start: 20170407
  3. ASPRIRIN ENTERIC COATED TABLETS [Concomitant]
     Route: 048
  4. ENALAPRIL MALEATE. [Suspect]
     Active Substance: ENALAPRIL MALEATE
     Route: 048
  5. TRIMETAZIDINE HYDROCHLORID [Concomitant]
     Route: 048

REACTIONS (7)
  - Acute myocardial infarction [Unknown]
  - Fatigue [Recovered/Resolved]
  - Drug-induced liver injury [Recovered/Resolved]
  - Chest pain [Recovered/Resolved]
  - Hypertension [Unknown]
  - Decreased appetite [Recovered/Resolved]
  - Angina pectoris [Unknown]

NARRATIVE: CASE EVENT DATE: 20180604
